FAERS Safety Report 14923351 (Version 1)
Quarter: 2018Q2

REPORT INFORMATION
  Report Type: Spontaneous
  Country: AM (occurrence: AM)
  Receive Date: 20180522
  Receipt Date: 20180522
  Transmission Date: 20180711
  Serious: Yes (Hospitalization)
  Sender: FDA-Public Use
  Company Number: AM-JNJFOC-20180526237

PATIENT
  Age: 38 Year
  Sex: Female
  Weight: 63 kg

DRUGS (3)
  1. JEANINE [Suspect]
     Active Substance: DIENOGEST\ETHINYL ESTRADIOL
     Indication: ENDOMETRIOSIS
     Route: 048
     Dates: start: 20180207, end: 20180221
  2. XARELTO [Suspect]
     Active Substance: RIVAROXABAN
     Indication: PRODUCT USED FOR UNKNOWN INDICATION
     Route: 048
  3. NEBILET [Concomitant]
     Active Substance: NEBIVOLOL
     Indication: BLOOD PRESSURE INCREASED
     Route: 065

REACTIONS (4)
  - Pulmonary embolism [Unknown]
  - Product use in unapproved indication [Unknown]
  - Painful respiration [Unknown]
  - Off label use [Unknown]

NARRATIVE: CASE EVENT DATE: 20180207
